FAERS Safety Report 15567811 (Version 1)
Quarter: 2018Q4

REPORT INFORMATION
  Report Type: Spontaneous
  Country: US (occurrence: US)
  Receive Date: 20181030
  Receipt Date: 20181030
  Transmission Date: 20190205
  Serious: Yes (Other)
  Sender: FDA-Public Use
  Company Number: US-009507513-1610USA015480

PATIENT
  Sex: Female

DRUGS (2)
  1. IMPLANON [Suspect]
     Active Substance: ETONOGESTREL
     Indication: CONTRACEPTION
     Dosage: 1 DOSAGE FORM, LEFT UPPER ARM
     Route: 059
     Dates: end: 20110623
  2. IMPLANON [Suspect]
     Active Substance: ETONOGESTREL
     Indication: CONTRACEPTION
     Dosage: 1 DOSAGE FORM, UNKNOWN, LEFT UPPER ARM
     Route: 059
     Dates: start: 20110623, end: 20160926

REACTIONS (10)
  - Obesity [Not Recovered/Not Resolved]
  - Scar [Not Recovered/Not Resolved]
  - General anaesthesia [Recovered/Resolved]
  - Incorrect product administration duration [Recovered/Resolved]
  - Uterine leiomyoma [Unknown]
  - Complication associated with device [Recovered/Resolved]
  - Complication of device removal [Recovered/Resolved]
  - Device dislocation [Recovered/Resolved]
  - Complication of device removal [Recovered/Resolved]
  - Surgery [Recovered/Resolved]

NARRATIVE: CASE EVENT DATE: 201406
